FAERS Safety Report 5563758-4 (Version None)
Quarter: 2007Q4

REPORT INFORMATION
  Report Type: 
  Country: None (occurrence: None)
  Receive Date: 20071217
  Receipt Date: 20070830
  Transmission Date: 20080405
  Serious: Yes (Other)
  Sender: FDA-Public Use
  Company Number: US-ASTRAZENECA-2007UW20014

PATIENT
  Age: 53 Year
  Sex: Female

DRUGS (4)
  1. CRESTOR [Suspect]
     Route: 048
     Dates: start: 20051220
  2. AVAPRO [Concomitant]
  3. SYNTHROID [Concomitant]
  4. FLUOXETINE [Concomitant]

REACTIONS (1)
  - RENAL IMPAIRMENT [None]
